FAERS Safety Report 21869613 (Version 1)
Quarter: 2023Q1

REPORT INFORMATION
  Report Type: Spontaneous
  Country: NL (occurrence: NL)
  Receive Date: 20230117
  Receipt Date: 20230117
  Transmission Date: 20230417
  Serious: Yes (Other)
  Sender: FDA-Public Use
  Company Number: NL-ALKABELLO A/S-2023AA000118

PATIENT

DRUGS (4)
  1. BETULA PENDULA POLLEN [Suspect]
     Active Substance: BETULA PENDULA POLLEN
     Indication: Rhinitis allergic
     Dosage: 12 SQ
     Dates: start: 20210119, end: 20210912
  2. GRAZAX [Suspect]
     Active Substance: PHLEUM PRATENSE POLLEN
     Indication: Rhinitis allergic
     Dosage: 7500 SQ
     Dates: start: 20210225, end: 20210912
  3. ACARIZAX [Suspect]
     Active Substance: DERMATOPHAGOIDES FARINAE\DERMATOPHAGOIDES PTERONYSSINUS
     Indication: Rhinitis allergic
     Dosage: UNK
     Dates: start: 20210408, end: 20210912
  4. LEVOCETIRIZINE [Concomitant]
     Active Substance: LEVOCETIRIZINE
     Indication: Conjunctivitis
     Dosage: 5 MILLIGRAM
     Route: 048
     Dates: start: 2020

REACTIONS (1)
  - Eosinophilic oesophagitis [Recovered/Resolved with Sequelae]

NARRATIVE: CASE EVENT DATE: 20210829
